FAERS Safety Report 9446681 (Version 1)
Quarter: 2013Q3

REPORT INFORMATION
  Report Type: Spontaneous
  Country: US (occurrence: US)
  Receive Date: 20130807
  Receipt Date: 20130807
  Transmission Date: 20140515
  Serious: No
  Sender: FDA-Public Use
  Company Number: US-AMGEN-USASP2013049471

PATIENT
  Age: 48 Year
  Sex: Female

DRUGS (2)
  1. ENBREL [Suspect]
     Indication: RHEUMATOID ARTHRITIS
     Dosage: 50 MG, QWK
     Route: 065
     Dates: start: 20130414
  2. METHOTREXATE [Concomitant]
     Dosage: UNK

REACTIONS (10)
  - Photophobia [Not Recovered/Not Resolved]
  - Rash [Recovered/Resolved]
  - Diarrhoea [Unknown]
  - Mobility decreased [Not Recovered/Not Resolved]
  - Vision blurred [Not Recovered/Not Resolved]
  - Diplopia [Not Recovered/Not Resolved]
  - Joint crepitation [Not Recovered/Not Resolved]
  - Chondropathy [Not Recovered/Not Resolved]
  - Joint swelling [Not Recovered/Not Resolved]
  - Arthralgia [Not Recovered/Not Resolved]
